FAERS Safety Report 23614765 (Version 4)
Quarter: 2025Q1

REPORT INFORMATION
  Report Type: Spontaneous
  Country: US (occurrence: US)
  Receive Date: 20240311
  Receipt Date: 20250121
  Transmission Date: 20250409
  Serious: Yes (Disabling, Other)
  Sender: AMGEN
  Company Number: US-HORIZON THERAPEUTICS-HZN-2024-002751

PATIENT
  Age: 65 Year
  Sex: Female

DRUGS (17)
  1. TEPEZZA [Suspect]
     Active Substance: TEPROTUMUMAB-TRBW
     Indication: Endocrine ophthalmopathy
     Dosage: 1113 MILLIGRAM, Q3WK (FIRST INFUSION)
     Route: 042
     Dates: start: 20220228
  2. TEPEZZA [Suspect]
     Active Substance: TEPROTUMUMAB-TRBW
     Dosage: 2209 MILLIGRAM, Q3WK (SECOND INFUSION)
     Route: 042
     Dates: start: 20220321
  3. TEPEZZA [Suspect]
     Active Substance: TEPROTUMUMAB-TRBW
     Dosage: 2160 MILLIGRAM, Q3WK (THIRD INFUSION)
     Route: 042
     Dates: start: 20220411
  4. TEPEZZA [Suspect]
     Active Substance: TEPROTUMUMAB-TRBW
     Dosage: 2185 MILLIGRAM, Q3WK (FOURTH INFUSION)
     Route: 042
     Dates: start: 20220502
  5. TEPEZZA [Suspect]
     Active Substance: TEPROTUMUMAB-TRBW
     Dosage: 2185 MILLIGRAM, Q3WK  (FIFTH INFUSION)
     Route: 042
     Dates: start: 20220523
  6. TEPEZZA [Suspect]
     Active Substance: TEPROTUMUMAB-TRBW
     Dosage: 2118 MILLIGRAM, Q3WK (SIXTH INFUSION)
     Route: 042
     Dates: start: 20220613
  7. TEPEZZA [Suspect]
     Active Substance: TEPROTUMUMAB-TRBW
     Dosage: 1080 MILLIGRAM, Q3WK (SEVENTH INFUSION)
     Route: 042
     Dates: start: 20220705
  8. TEPEZZA [Suspect]
     Active Substance: TEPROTUMUMAB-TRBW
     Dosage: 2060 MILLIGRAM, Q3WK (EIGHTH INFUSION)
     Route: 042
     Dates: start: 20220726
  9. CYMBALTA [Concomitant]
     Active Substance: DULOXETINE HYDROCHLORIDE
     Dosage: 30 MILLIGRAM, QD
     Route: 048
  10. TAPAZOLE [Concomitant]
     Active Substance: METHIMAZOLE
     Dosage: 5 MILLIGRAM, QD
     Route: 048
  11. ZYRTEC [Concomitant]
     Active Substance: CETIRIZINE HYDROCHLORIDE
     Dosage: 10 MILLIGRAM, QD (AS NEEDED)
     Route: 065
  12. NEURONTIN [Concomitant]
     Active Substance: GABAPENTIN
     Route: 048
  13. SYNTHROID [Concomitant]
     Active Substance: LEVOTHYROXINE SODIUM
     Dosage: 125 MICROGRAM, QD
     Route: 048
  14. BACTROBAN [Concomitant]
     Active Substance: MUPIROCIN CALCIUM
     Dosage: UNK, QD (SMALL AMOUNT TO AFFECTED AREA)
     Route: 065
  15. ZOFRAN [Concomitant]
     Active Substance: ONDANSETRON HYDROCHLORIDE
     Route: 048
  16. TAMOXIFEN [Concomitant]
     Active Substance: TAMOXIFEN
     Dosage: 20 MILLIGRAM, QD
     Route: 048
  17. EPINEPHRINE [Concomitant]
     Active Substance: EPINEPHRINE
     Route: 065

REACTIONS (41)
  - Deafness permanent [Not Recovered/Not Resolved]
  - Physical disability [Not Recovered/Not Resolved]
  - Deafness neurosensory [Unknown]
  - Hypothyroidism [Unknown]
  - Cerebral atrophy [Unknown]
  - Disability [Not Recovered/Not Resolved]
  - Injury [Not Recovered/Not Resolved]
  - Pain [Not Recovered/Not Resolved]
  - Anxiety [Not Recovered/Not Resolved]
  - Discomfort [Not Recovered/Not Resolved]
  - Emotional distress [Not Recovered/Not Resolved]
  - Impaired quality of life [Not Recovered/Not Resolved]
  - Concomitant disease aggravated [Not Recovered/Not Resolved]
  - Tinnitus [Not Recovered/Not Resolved]
  - Economic problem [Not Recovered/Not Resolved]
  - Product quality issue [Unknown]
  - Obesity [Unknown]
  - Bradycardia [Unknown]
  - Protein total decreased [Unknown]
  - Alanine aminotransferase decreased [Unknown]
  - Red blood cell count decreased [Unknown]
  - Haematocrit decreased [Unknown]
  - Mean cell haemoglobin increased [Unknown]
  - Mean platelet volume decreased [Unknown]
  - Lymphocyte count increased [Unknown]
  - Thyroxine free decreased [Unknown]
  - Blood thyroid stimulating hormone increased [Unknown]
  - Tri-iodothyronine decreased [Unknown]
  - Hypertension [Unknown]
  - Laryngeal disorder [Unknown]
  - Reflux laryngitis [Unknown]
  - Cerumen impaction [Unknown]
  - White blood cell count increased [Unknown]
  - Mean cell volume increased [Unknown]
  - Neutrophil count increased [Unknown]
  - Oropharyngeal pain [Unknown]
  - Thyroid stimulating immunoglobulin increased [Unknown]
  - Eye swelling [Recovered/Resolved]
  - Diplopia [Unknown]
  - Breast cyst [Unknown]
  - Breast calcifications [Unknown]

NARRATIVE: CASE EVENT DATE: 20220804
